FAERS Safety Report 8350923 (Version 3)
Quarter: 2012Q4

REPORT INFORMATION
  Report Type: Report from Study
  Country: CA (occurrence: CA)
  Receive Date: 20120124
  Receipt Date: 20120924
  Transmission Date: 20130627
  Serious: Yes (Death, Other)
  Sender: FDA-Public Use
  Company Number: CA-ROCHE-776779

PATIENT
  Age: 59 Year
  Sex: Male
  Weight: 90.8 kg

DRUGS (14)
  1. AVASTIN [Suspect]
     Indication: GLIOBLASTOMA
     Dosage: INFUSION, FORM, DOSE: UNKNOWN
     Route: 042
  2. AVASTIN [Suspect]
     Route: 042
     Dates: start: 20110427, end: 20120105
  3. DECADRON [Concomitant]
  4. PANTOLOC [Concomitant]
  5. TYLENOL [Concomitant]
     Indication: PREMEDICATION
     Route: 048
     Dates: start: 20110427, end: 20110513
  6. TYLENOL [Concomitant]
     Dosage: FREQUENCY:ONCE
     Route: 048
     Dates: start: 20110622, end: 20110622
  7. TYLENOL [Concomitant]
     Route: 048
     Dates: start: 20120105, end: 20120105
  8. BENADRYL [Concomitant]
     Indication: PREMEDICATION
     Route: 048
     Dates: start: 20110427, end: 20110513
  9. BENADRYL [Concomitant]
     Route: 048
     Dates: start: 20110622, end: 20110622
  10. SOLU-MEDROL [Concomitant]
     Indication: PREMEDICATION
     Route: 042
     Dates: start: 20110427, end: 20110513
  11. SOLU-MEDROL [Concomitant]
     Route: 042
     Dates: start: 20110622, end: 20110622
  12. SOLU-MEDROL [Concomitant]
     Route: 042
     Dates: start: 20120105, end: 20120105
  13. ACETAMINOPHEN [Concomitant]
     Indication: PREMEDICATION
     Route: 048
     Dates: start: 20120105, end: 20120105
  14. METHYLPREDNISOLONE [Concomitant]
     Indication: PREMEDICATION
     Route: 042
     Dates: start: 20120105, end: 20120105

REACTIONS (3)
  - Death [Fatal]
  - Disease progression [Not Recovered/Not Resolved]
  - Haemoptysis [Recovered/Resolved]
